FAERS Safety Report 8055087 (Version 7)
Quarter: 2013Q4

REPORT INFORMATION
  Report Type: Spontaneous
  Country: US (occurrence: US)
  Receive Date: 20110726
  Receipt Date: 20131015
  Transmission Date: 20140711
  Serious: Yes (Hospitalization)
  Sender: FDA-Public Use
  Company Number: US-ACTELION-A-NJ2011-51687

PATIENT
  Age: 68 Year
  Sex: Female
  Weight: 85.26 kg

DRUGS (3)
  1. TRACLEER [Suspect]
     Indication: PULMONARY ARTERIAL HYPERTENSION
     Dosage: UNK
     Route: 048
     Dates: start: 200802
  2. VENTAVIS [Suspect]
     Indication: PULMONARY ARTERIAL HYPERTENSION
     Dosage: UNK
     Route: 055
     Dates: start: 20100212
  3. LASIX [Concomitant]

REACTIONS (8)
  - Gout [Unknown]
  - Rheumatoid arthritis [Recovering/Resolving]
  - Finger deformity [Recovering/Resolving]
  - Arthralgia [Recovering/Resolving]
  - Swelling [Unknown]
  - Arthropathy [Unknown]
  - Abnormal loss of weight [Recovering/Resolving]
  - Dizziness [Unknown]
